FAERS Safety Report 6489688-1 (Version None)
Quarter: 2009Q4

REPORT INFORMATION
  Report Type: 
  Country: None (occurrence: None)
  Receive Date: 20091207
  Receipt Date: 20091120
  Transmission Date: 20100525
  Serious: Yes (Other)
  Sender: FDA-Public Use
  Company Number: 2009AL007406

PATIENT
  Age: 62 Year
  Sex: Female

DRUGS (1)
  1. DICLOFENAC SODIUM [Suspect]

REACTIONS (4)
  - DRUG ABUSE [None]
  - GASTROINTESTINAL ULCER HAEMORRHAGE [None]
  - ILEAL ULCER [None]
  - LARGE INTESTINAL ULCER [None]
